FAERS Safety Report 6456550-X (Version None)
Quarter: 2009Q4

REPORT INFORMATION
  Report Type: 
  Country: None (occurrence: None)
  Receive Date: 20091125
  Receipt Date: 20090217
  Transmission Date: 20100525
  Serious: No
  Sender: FDA-Public Use
  Company Number: US-BAYER-200915153NA

PATIENT
  Age: 29 Year
  Sex: Female

DRUGS (1)
  1. MAGNEVIST [Suspect]
     Indication: NUCLEAR MAGNETIC RESONANCE IMAGING
     Dosage: TOTAL DAILY DOSE: 19 ML
     Route: 042
     Dates: start: 20090129, end: 20090129

REACTIONS (2)
  - LIMB DISCOMFORT [None]
  - PAIN IN EXTREMITY [None]
